FAERS Safety Report 13928113 (Version 1)
Quarter: 2017Q3

REPORT INFORMATION
  Report Type: Report from Study
  Country: JP (occurrence: JP)
  Receive Date: 20170901
  Receipt Date: 20170901
  Transmission Date: 20171127
  Serious: Yes (Other)
  Sender: FDA-Public Use
  Company Number: JP-ROCHE-1984068

PATIENT

DRUGS (1)
  1. OSELTAMIVIR [Suspect]
     Active Substance: OSELTAMIVIR
     Indication: INFLUENZA
     Route: 065

REACTIONS (8)
  - Delirium [Unknown]
  - Hallucination [Unknown]
  - Sensory disturbance [Unknown]
  - Abnormal behaviour [Unknown]
  - Anger [Unknown]
  - Fear [Unknown]
  - Crying [Unknown]
  - Panic disorder [Unknown]
